FAERS Safety Report 25045364 (Version 1)
Quarter: 2025Q1

REPORT INFORMATION
  Report Type: Report from Study
  Country: US (occurrence: US)
  Receive Date: 20250306
  Receipt Date: 20250306
  Transmission Date: 20250409
  Serious: Yes (Hospitalization)
  Sender: GILEAD
  Company Number: US-GILEAD-2025-0706207

PATIENT
  Sex: Male

DRUGS (1)
  1. AZTREONAM LYSINE [Suspect]
     Active Substance: AZTREONAM LYSINE
     Indication: Cystic fibrosis
     Dosage: INHALE 1 VIAL 75 MG VIA ALTERA NEBULIZER THREE TIMES DAILY. TAKE CONTINUOUSLY WITH NO TIME OFF
     Route: 055

REACTIONS (2)
  - Infection [Unknown]
  - Product use issue [Unknown]
